FAERS Safety Report 5446475-0 (Version None)
Quarter: 2007Q3

REPORT INFORMATION
  Report Type: 
  Country: None (occurrence: None)
  Receive Date: 20070907
  Receipt Date: 20070905
  Transmission Date: 20080115
  Serious: Yes (Hospitalization)
  Sender: FDA-Public Use
  Company Number: KR-SANOFI-SYNTHELABO-F01200700866

PATIENT
  Age: 62 Year
  Sex: Male
  Weight: 60 kg

DRUGS (8)
  1. DOXORUBICIN HCL [Suspect]
     Indication: HEPATIC NEOPLASM MALIGNANT
     Route: 042
     Dates: start: 20070627, end: 20070627
  2. CALCIUM POLYSTYRENE SULFONATE [Concomitant]
     Route: 048
     Dates: start: 20070703, end: 20070703
  3. NYSTATIN [Concomitant]
     Dosage: GARGLE UNK
     Route: 048
     Dates: start: 20070702
  4. FENTANYL TRANSDERMAL SYSTEM [Concomitant]
     Route: 062
     Dates: start: 20070526
  5. MAGNESIUM OXIDE [Concomitant]
     Route: 048
     Dates: start: 20070625, end: 20070704
  6. FUROSEMIDE [Concomitant]
     Route: 048
     Dates: start: 20070525, end: 20070704
  7. TAMSULOSIN HCL [Concomitant]
     Route: 048
     Dates: start: 20070601, end: 20070704
  8. MORPHINE SULFATE [Concomitant]
     Route: 048
     Dates: start: 20070604

REACTIONS (5)
  - DEHYDRATION [None]
  - HYPERKALAEMIA [None]
  - HYPERTENSION [None]
  - HYPOTENSION [None]
  - PANCYTOPENIA [None]
